FAERS Safety Report 6699047-4 (Version None)
Quarter: 2010Q2

REPORT INFORMATION
  Report Type: 
  Country: None (occurrence: None)
  Receive Date: 20100423
  Receipt Date: 20100409
  Transmission Date: 20101027
  Serious: Yes (Other)
  Sender: FDA-Public Use
  Company Number: 004865

PATIENT
  Sex: Female

DRUGS (4)
  1. CERTOLIZUMAB PEGOL (CDP870) [Suspect]
     Indication: RHEUMATOID ARTHRITIS
     Dosage: SUBCUTANEOUS
     Route: 058
     Dates: start: 20090825, end: 20091116
  2. PREDNISOLONE [Concomitant]
  3. IBUPROFEN [Concomitant]
  4. XUSAL [Concomitant]

REACTIONS (2)
  - CERVICAL DYSPLASIA [None]
  - NEOPLASM RECURRENCE [None]
